FAERS Safety Report 5787588-3 (Version None)
Quarter: 2008Q2

REPORT INFORMATION
  Report Type: 
  Country: None (occurrence: None)
  Receive Date: 20080625
  Receipt Date: 20080617
  Transmission Date: 20081010
  Serious: Yes (Hospitalization, Other)
  Sender: FDA-Public Use
  Company Number: US-MERCK-0704USA04186

PATIENT
  Age: 80 Year
  Sex: Female

DRUGS (7)
  1. FOSAMAX [Suspect]
     Indication: OSTEOPOROSIS
     Route: 048
     Dates: start: 19990830, end: 20010601
  2. FOSAMAX [Suspect]
     Route: 048
     Dates: start: 20010701, end: 20020701
  3. FOSAMAX [Suspect]
     Route: 048
     Dates: start: 20020901, end: 20060101
  4. FOSAMAX [Suspect]
     Indication: RHEUMATOID ARTHRITIS
     Route: 048
     Dates: start: 19990830, end: 20010601
  5. FOSAMAX [Suspect]
     Route: 048
     Dates: start: 20010701, end: 20020701
  6. FOSAMAX [Suspect]
     Route: 048
     Dates: start: 20020901, end: 20060101
  7. NORVASC [Concomitant]
     Indication: BLOOD PRESSURE
     Route: 065
     Dates: start: 19990831

REACTIONS (17)
  - ANXIETY [None]
  - BLOOD CHOLESTEROL DECREASED [None]
  - CARDIOVASCULAR DISORDER [None]
  - CAROTID ARTERY STENOSIS [None]
  - CEREBROVASCULAR DISORDER [None]
  - CHEST PAIN [None]
  - CONTUSION [None]
  - DEPRESSION [None]
  - EYE DISORDER [None]
  - GASTROOESOPHAGEAL REFLUX DISEASE [None]
  - NECK PAIN [None]
  - OSTEOMYELITIS [None]
  - OSTEONECROSIS [None]
  - ROAD TRAFFIC ACCIDENT [None]
  - SPINAL COLUMN STENOSIS [None]
  - STOMATITIS [None]
  - WHIPLASH INJURY [None]
